FAERS Safety Report 10560177 (Version 17)
Quarter: 2016Q4

REPORT INFORMATION
  Report Type: Report from Study
  Country: CA (occurrence: CA)
  Receive Date: 20141103
  Receipt Date: 20161206
  Transmission Date: 20170206
  Serious: Yes (Hospitalization, Other)
  Sender: FDA-Public Use
  Company Number: PHHY2014CA130730

PATIENT
  Age: 31 Year
  Sex: Male
  Weight: 89 kg

DRUGS (5)
  1. SANDOSTATIN LAR DEPOT [Suspect]
     Active Substance: OCTREOTIDE ACETATE
     Indication: CARCINOID TUMOUR
     Dosage: 30 MG, QMO (ONCE A MONTH)
     Route: 030
     Dates: start: 20140825
  2. SANDOSTATIN LAR DEPOT [Suspect]
     Active Substance: OCTREOTIDE ACETATE
     Dosage: 40 MG, QMO 40 MG, QMO (EVERY 4 WEEKS)
     Route: 030
  3. SANDOSTATIN LAR DEPOT [Suspect]
     Active Substance: OCTREOTIDE ACETATE
     Dosage: 50 MG (EVERY 3 WEEKS)
     Route: 030
     Dates: start: 20160524
  4. SANDOSTATIN [Suspect]
     Active Substance: OCTREOTIDE ACETATE
     Indication: CARCINOID TUMOUR
     Dosage: BID
     Route: 058
     Dates: start: 201406, end: 2014
  5. SANDOSTATIN LAR DEPOT [Suspect]
     Active Substance: OCTREOTIDE ACETATE
     Dosage: 40 MG (EVERY 3 WEEKS)
     Route: 030
     Dates: start: 20160111, end: 20160502

REACTIONS (20)
  - Gastric disorder [Unknown]
  - Hepatic neoplasm [Unknown]
  - Nephrolithiasis [Unknown]
  - Diarrhoea [Unknown]
  - Drug administration error [Unknown]
  - Gastrointestinal neoplasm [Unknown]
  - Blood pressure increased [Unknown]
  - Decreased appetite [Unknown]
  - Injection site pain [Unknown]
  - Procedural pain [Unknown]
  - Back disorder [Unknown]
  - Abdominal pain upper [Unknown]
  - Dyspepsia [Unknown]
  - Heart rate decreased [Unknown]
  - Abdominal pain [Unknown]
  - Inappropriate schedule of drug administration [Unknown]
  - Vomiting [Unknown]
  - Haematuria [Unknown]
  - Frostbite [Unknown]
  - Weight decreased [Unknown]

NARRATIVE: CASE EVENT DATE: 20140825
